FAERS Safety Report 12262913 (Version 3)
Quarter: 2016Q2

REPORT INFORMATION
  Report Type: Spontaneous
  Country: US (occurrence: US)
  Receive Date: 20160413
  Receipt Date: 20160620
  Transmission Date: 20160815
  Serious: No
  Sender: FDA-Public Use
  Company Number: US-PFIZER INC-2016206112

PATIENT
  Age: 65 Year
  Sex: Female
  Weight: 58.51 kg

DRUGS (2)
  1. GABAPENTIN. [Suspect]
     Active Substance: GABAPENTIN
     Indication: POST HERPETIC NEURALGIA
     Dosage: UNK
     Dates: start: 201602, end: 201604
  2. CALCIUM WITH VIT D SUPPLEMENT [Concomitant]

REACTIONS (6)
  - Depression [Unknown]
  - Swelling [Unknown]
  - Vision blurred [Unknown]
  - Oedema [Unknown]
  - Drug effect incomplete [Unknown]
  - Weight increased [Unknown]
